FAERS Safety Report 4607951-3 (Version None)
Quarter: 2005Q2

REPORT INFORMATION
  Report Type: 
  Country: None (occurrence: None)
  Receive Date: 20050303
  Receipt Date: 20041011
  Transmission Date: 20051028
  Serious: No
  Sender: FDA-Public Use
  Company Number: 207245

PATIENT
  Age: 53 Year
  Sex: Female
  Weight: 96.1 kg

DRUGS (14)
  1. XOLAIR [Suspect]
     Indication: ASTHMA
     Dosage: 225 MG, Q2W, SUBCUTANEOUS
     Route: 058
     Dates: start: 20030915, end: 20040201
  2. LASIX [Concomitant]
  3. DUONEB (IPRATROPIUM BROMIDE, ALBUTEROL, ALBUTEROL SULFATE) [Concomitant]
  4. ADVAIR (SALMETEROL XINAFOATE, FLUTICASONE PROPIONATE) [Concomitant]
  5. QVAR (BECLOMETHASONE DIPROPIONATE) [Concomitant]
  6. XOPENEX [Concomitant]
  7. PREDNISONE [Concomitant]
  8. NORVASC [Concomitant]
  9. FLONASE [Concomitant]
  10. THEOPHYLLINE [Concomitant]
  11. FOSAMAX [Concomitant]
  12. ALBUTEROL (ALBUTEROL SULFATE, ALBUTEROL) [Concomitant]
  13. CHONDROITIN SULFATE/ GLUCOSAMINE (GLUCOSAMINE, CHONDROITIN SULFATE) [Concomitant]
  14. AUGMENTIN (AMOXICILLIN, CLAVULANATE POTASSIUM) [Concomitant]

REACTIONS (1)
  - BLADDER CANCER [None]
